FAERS Safety Report 24017605 (Version 1)
Quarter: 2024Q2

REPORT INFORMATION
  Report Type: Spontaneous
  Country: US (occurrence: US)
  Receive Date: 20240627
  Receipt Date: 20240627
  Transmission Date: 20240716
  Serious: No
  Sender: FDA-Public Use
  Company Number: US-TEVA-VS-3209939

PATIENT
  Age: 36 Year
  Sex: Female

DRUGS (2)
  1. UZEDY [Suspect]
     Active Substance: RISPERIDONE
     Indication: Schizoaffective disorder
     Dosage: 100/0.28 MG/ML
     Route: 065
  2. UZEDY [Suspect]
     Active Substance: RISPERIDONE
     Indication: Bipolar disorder

REACTIONS (4)
  - Tremor [Unknown]
  - Product prescribing issue [Not Recovered/Not Resolved]
  - Dysphemia [Not Recovered/Not Resolved]
  - Dyskinesia [Unknown]
